FAERS Safety Report 6226485-6 (Version None)
Quarter: 2009Q2

REPORT INFORMATION
  Report Type: 
  Country: None (occurrence: None)
  Receive Date: 20090612
  Receipt Date: 20090508
  Transmission Date: 20091009
  Serious: No
  Sender: FDA-Public Use
  Company Number: US-ABBOTT-09P-163-0572782-00

PATIENT
  Sex: Female
  Weight: 104.42 kg

DRUGS (29)
  1. HUMIRA [Suspect]
     Indication: PSORIATIC ARTHROPATHY
     Route: 058
     Dates: start: 20090326
  2. SYNTHROID [Concomitant]
     Indication: DRUG USE FOR UNKNOWN INDICATION
     Route: 048
  3. REGLAN [Concomitant]
     Indication: DRUG USE FOR UNKNOWN INDICATION
     Route: 048
  4. NEURONTIN [Concomitant]
     Indication: DRUG USE FOR UNKNOWN INDICATION
     Route: 048
  5. ALLOPURINOL [Concomitant]
     Indication: DRUG USE FOR UNKNOWN INDICATION
     Route: 048
  6. LASIX [Concomitant]
     Indication: DRUG USE FOR UNKNOWN INDICATION
     Route: 048
  7. ASPIRIN [Concomitant]
     Indication: DRUG USE FOR UNKNOWN INDICATION
     Route: 048
  8. PROVENTIL-HFA [Concomitant]
     Indication: DRUG USE FOR UNKNOWN INDICATION
  9. PERCOCET [Concomitant]
     Indication: DRUG USE FOR UNKNOWN INDICATION
     Dosage: 10/325MG
     Route: 048
  10. ZAROXOLYN [Concomitant]
     Indication: DRUG USE FOR UNKNOWN INDICATION
     Route: 048
  11. FOLIC ACID [Concomitant]
     Indication: DRUG USE FOR UNKNOWN INDICATION
     Route: 048
  12. ALTACE [Concomitant]
     Indication: DRUG USE FOR UNKNOWN INDICATION
     Route: 048
  13. NEXIUM [Concomitant]
     Indication: DRUG USE FOR UNKNOWN INDICATION
     Route: 048
  14. PREMARIN [Concomitant]
     Indication: DRUG USE FOR UNKNOWN INDICATION
  15. NOVOLIN N [Concomitant]
     Indication: DRUG USE FOR UNKNOWN INDICATION
     Route: 058
  16. NOVOLIN R [Concomitant]
     Indication: DRUG USE FOR UNKNOWN INDICATION
     Dosage: SLIDING SCALE
     Route: 058
  17. OXYCONTIN [Concomitant]
     Indication: DRUG USE FOR UNKNOWN INDICATION
     Route: 048
  18. SINGULAIR [Concomitant]
     Indication: DRUG USE FOR UNKNOWN INDICATION
  19. POTASSIUM CHLORIDE [Concomitant]
     Indication: DRUG USE FOR UNKNOWN INDICATION
     Route: 048
  20. MUCINEX DM [Concomitant]
     Indication: DRUG USE FOR UNKNOWN INDICATION
  21. CLOBETASOL 0.05% [Concomitant]
     Indication: DRUG USE FOR UNKNOWN INDICATION
  22. VITAMIN B1 TAB [Concomitant]
     Indication: DRUG USE FOR UNKNOWN INDICATION
  23. CALCIUM [Concomitant]
     Indication: DRUG USE FOR UNKNOWN INDICATION
     Route: 048
  24. VITAMIN D [Concomitant]
     Indication: DRUG USE FOR UNKNOWN INDICATION
  25. M.V.I. [Concomitant]
     Indication: DRUG USE FOR UNKNOWN INDICATION
  26. VITAMIN E [Concomitant]
     Indication: DRUG USE FOR UNKNOWN INDICATION
  27. ASCORBIC ACID [Concomitant]
     Indication: DRUG USE FOR UNKNOWN INDICATION
  28. FISH OIL [Concomitant]
     Indication: DRUG USE FOR UNKNOWN INDICATION
  29. MAGNESIUM SULFATE [Concomitant]
     Indication: DRUG USE FOR UNKNOWN INDICATION

REACTIONS (6)
  - BALANCE DISORDER [None]
  - FALL [None]
  - FATIGUE [None]
  - GAIT DISTURBANCE [None]
  - HAEMOGLOBIN DECREASED [None]
  - MALAISE [None]
